FAERS Safety Report 15048509 (Version 1)
Quarter: 2018Q2

REPORT INFORMATION
  Report Type: Spontaneous
  Country: SE (occurrence: SE)
  Receive Date: 20180622
  Receipt Date: 20180622
  Transmission Date: 20180711
  Serious: Yes (Other)
  Sender: FDA-Public Use
  Company Number: SE-TEVA-2018-SE-912365

PATIENT
  Age: 21 Year
  Sex: Female

DRUGS (2)
  1. MINI-PE [Concomitant]
     Route: 065
  2. SERTRALINE [Suspect]
     Active Substance: SERTRALINE HYDROCHLORIDE
     Indication: DEPRESSION
     Dosage: 50 MILLIGRAM DAILY;
     Route: 048

REACTIONS (1)
  - Cerebral vasoconstriction [Not Recovered/Not Resolved]

NARRATIVE: CASE EVENT DATE: 20180501
